FAERS Safety Report 4593636-9 (Version None)
Quarter: 2005Q1

REPORT INFORMATION
  Report Type: 
  Country: None (occurrence: None)
  Receive Date: 20050224
  Receipt Date: 20041012
  Transmission Date: 20050727
  Serious: No
  Sender: FDA-Public Use
  Company Number: US-BRISTOL-MYERS SQUIBB COMPANY-12735544

PATIENT
  Sex: Female
  Weight: 89 kg

DRUGS (5)
  1. EXCEDRIN (MIGRAINE) [Suspect]
     Indication: HEADACHE
     Dosage: 10/11/2004
     Route: 048
     Dates: start: 20041011, end: 20041014
  2. TEGRETOL [Concomitant]
  3. DEPAKOTE [Concomitant]
  4. LEXAPRO [Concomitant]
  5. ZYPREXA [Concomitant]

REACTIONS (1)
  - NAUSEA [None]
